FAERS Safety Report 26182518 (Version 1)
Quarter: 2025Q4

REPORT INFORMATION
  Report Type: Spontaneous
  Country: US (occurrence: US)
  Receive Date: 20251221
  Receipt Date: 20251221
  Transmission Date: 20260118
  Serious: No
  Sender: AMNEAL
  Company Number: US-AMNEAL PHARMACEUTICALS-2025-AMRX-00437

PATIENT
  Age: 61 Year
  Sex: Male

DRUGS (1)
  1. ITRACONAZOLE [Suspect]
     Active Substance: ITRACONAZOLE
     Indication: Product used for unknown indication
     Dosage: 10 MG/ML, 1 /DAY
     Route: 048
     Dates: start: 20250130, end: 20250203

REACTIONS (1)
  - Nausea [Recovered/Resolved]

NARRATIVE: CASE EVENT DATE: 20250130
